FAERS Safety Report 11302617 (Version 1)
Quarter: 2015Q3

REPORT INFORMATION
  Report Type: Report from Study
  Country: US (occurrence: US)
  Receive Date: 20150723
  Receipt Date: 20150723
  Transmission Date: 20151125
  Serious: Yes (Hospitalization)
  Sender: FDA-Public Use
  Company Number: US-BIOGENIDEC-2015BI100966

PATIENT
  Age: 36 Year
  Sex: Female

DRUGS (1)
  1. TECFIDERA [Suspect]
     Active Substance: DIMETHYL FUMARATE
     Indication: MULTIPLE SCLEROSIS
     Route: 048
     Dates: start: 201506

REACTIONS (5)
  - Vision blurred [Unknown]
  - Balance disorder [Unknown]
  - Speech disorder [Unknown]
  - Multiple sclerosis [Unknown]
  - Posture abnormal [Unknown]

NARRATIVE: CASE EVENT DATE: 20150703
